FAERS Safety Report 6894710-4 (Version None)
Quarter: 2010Q3

REPORT INFORMATION
  Report Type: 
  Country: None (occurrence: None)
  Receive Date: 20100802
  Receipt Date: 20100723
  Transmission Date: 20110219
  Serious: Yes (Hospitalization)
  Sender: FDA-Public Use
  Company Number: US-JNJFOC-20100708119

PATIENT
  Sex: Female

DRUGS (1)
  1. LEVAQUIN [Suspect]
     Indication: PYELONEPHRITIS
     Dosage: TAKEN FOR 26 DAYS
     Route: 065

REACTIONS (4)
  - ABASIA [None]
  - HYPOAESTHESIA [None]
  - PARAESTHESIA [None]
  - TENDONITIS [None]
